FAERS Safety Report 7413627-X (Version None)
Quarter: 2011Q2

REPORT INFORMATION
  Report Type: 
  Country: None (occurrence: None)
  Receive Date: 20110413
  Receipt Date: 20110406
  Transmission Date: 20111010
  Serious: Yes (Other)
  Sender: FDA-Public Use
  Company Number: PHHY2011US30143

PATIENT
  Sex: Male

DRUGS (1)
  1. SANDIMMUNE [Suspect]

REACTIONS (1)
  - PSORIASIS [None]
